FAERS Safety Report 6383197-6 (Version None)
Quarter: 2009Q3

REPORT INFORMATION
  Report Type: 
  Country: None (occurrence: None)
  Receive Date: 20090929
  Receipt Date: 20090921
  Transmission Date: 20100115
  Serious: Yes (Other)
  Sender: FDA-Public Use
  Company Number: TPA2009A02811

PATIENT
  Age: 60 Year
  Sex: Male
  Weight: 97.5234 kg

DRUGS (11)
  1. ULORIC [Suspect]
     Indication: GOUT
     Dosage: 40 MG, 1 IN 1 D, PER ORAL
     Route: 048
     Dates: start: 20090101, end: 20090901
  2. TRILEPTAL [Concomitant]
  3. TOPROL-XL [Concomitant]
  4. AVAPRO [Concomitant]
  5. NORVASC [Concomitant]
  6. COLCHICINE (COLCHICINE) [Concomitant]
  7. VYTORIN [Concomitant]
  8. LORAZEPAM [Concomitant]
  9. BUTALBITAL/CAFFEINE (CAFFEINE, BUTALBITAL, PARACETAMOL) [Concomitant]
  10. VICODIN [Concomitant]
  11. METHYLPREDNISOLONE DOSE PACK (METHYLPREDNISOLONE) [Concomitant]

REACTIONS (7)
  - CONVULSION [None]
  - FALL [None]
  - FEELING ABNORMAL [None]
  - LOSS OF CONSCIOUSNESS [None]
  - MIDDLE INSOMNIA [None]
  - MOOD ALTERED [None]
  - RESTLESSNESS [None]
